FAERS Safety Report 13701312 (Version 1)
Quarter: 2017Q2

REPORT INFORMATION
  Report Type: Spontaneous
  Country: US (occurrence: US)
  Receive Date: 20170628
  Receipt Date: 20170628
  Transmission Date: 20170830
  Serious: Yes (Hospitalization)
  Sender: FDA-Public Use
  Company Number: None

PATIENT
  Age: 45 Year
  Sex: Male

DRUGS (2)
  1. AMOXICILLIN/CLAVULANATE [Suspect]
     Active Substance: AMOXICILLIN\CLAVULANATE POTASSIUM
     Indication: LACERATION
     Dosage: 875-125 MG
     Route: 048
     Dates: start: 20170406, end: 20170410
  2. AMOXICILLIN/CLAVULANATE [Suspect]
     Active Substance: AMOXICILLIN\CLAVULANATE POTASSIUM
     Indication: INFECTION
     Dosage: 875-125 MG
     Route: 048
     Dates: start: 20170406, end: 20170410

REACTIONS (3)
  - Abdominal pain [None]
  - Clostridium difficile colitis [None]
  - Diarrhoea [None]

NARRATIVE: CASE EVENT DATE: 20170507
